FAERS Safety Report 4747048-5 (Version None)
Quarter: 2005Q3

REPORT INFORMATION
  Report Type: 
  Country: None (occurrence: None)
  Receive Date: 20050815
  Receipt Date: 20050809
  Transmission Date: 20060218
  Serious: Yes (Hospitalization)
  Sender: FDA-Public Use
  Company Number: S05-USA-03429-01

PATIENT
  Age: 63 Year
  Sex: Female

DRUGS (4)
  1. LEXAPRO [Suspect]
     Indication: ANXIETY
     Dosage: 10 MG QD, PO
     Route: 048
     Dates: start: 20050527
  2. LEXAPRO [Suspect]
     Indication: DEPRESSION
     Dosage: 10 MG QD, PO
     Route: 048
     Dates: start: 20050527
  3. ROBITUSSIN DM [Suspect]
     Indication: COUGH
     Dates: start: 20050703, end: 20050703
  4. ASPIRIN [Concomitant]

REACTIONS (7)
  - ATRIAL FIBRILLATION [None]
  - COUGH [None]
  - DIZZINESS [None]
  - DRUG INTERACTION [None]
  - HEART RATE INCREASED [None]
  - HEART RATE IRREGULAR [None]
  - LARYNGITIS [None]
